FAERS Safety Report 19122446 (Version 1)
Quarter: 2021Q2

REPORT INFORMATION
  Report Type: Spontaneous
  Country: US (occurrence: US)
  Receive Date: 20210412
  Receipt Date: 20210412
  Transmission Date: 20210717
  Serious: No
  Sender: FDA-Public Use
  Company Number: US-ALLERGAN-2104471US

PATIENT
  Age: 51 Year
  Sex: Female

DRUGS (4)
  1. TROKANDI XR [Concomitant]
     Indication: MIGRAINE
  2. BUTTE AVITENE [Concomitant]
     Indication: MIGRAINE
  3. LEVOTHYROXINE. [Concomitant]
     Active Substance: LEVOTHYROXINE
     Indication: HYPOTHYROIDISM
  4. UBRELVY [Suspect]
     Active Substance: UBROGEPANT
     Indication: MIGRAINE
     Dosage: 100 MG, Q2WEEKS
     Route: 048
     Dates: start: 20210113

REACTIONS (3)
  - Medication overuse headache [Not Recovered/Not Resolved]
  - Inappropriate schedule of product administration [Unknown]
  - Drug ineffective [Unknown]

NARRATIVE: CASE EVENT DATE: 20210123
